FAERS Safety Report 5923910-2 (Version None)
Quarter: 2008Q4

REPORT INFORMATION
  Report Type: 
  Country: None (occurrence: None)
  Receive Date: 20081020
  Receipt Date: 20081007
  Transmission Date: 20090506
  Serious: Yes (Death, Hospitalization)
  Sender: FDA-Public Use
  Company Number: MX-ROCHE-590769

PATIENT
  Sex: Female

DRUGS (4)
  1. PEGASYS [Suspect]
     Indication: ANTI-INFECTIVE THERAPY
     Route: 058
     Dates: start: 20080325, end: 20080902
  2. RIBAVIRIN [Suspect]
     Indication: ANTI-INFECTIVE THERAPY
     Route: 048
     Dates: start: 20080325, end: 20080902
  3. OMEPRAZOLE [Concomitant]
     Indication: ANTI-INFECTIVE THERAPY
     Dosage: FREQUENCY: 1X1
     Route: 048
     Dates: start: 20080325, end: 20080902
  4. ACETAMINOPHEN [Concomitant]
     Indication: ANTI-INFECTIVE THERAPY
     Dosage: FREQUENCY: 1X3
     Route: 048
     Dates: start: 20080325, end: 20080902

REACTIONS (2)
  - ABDOMINAL DISTENSION [None]
  - DEATH [None]
